FAERS Safety Report 9490123 (Version 3)
Quarter: 2013Q4

REPORT INFORMATION
  Report Type: Spontaneous
  Country: CA (occurrence: CA)
  Receive Date: 20130830
  Receipt Date: 20131104
  Transmission Date: 20140711
  Serious: Yes (Other)
  Sender: FDA-Public Use
  Company Number: CA-AMGEN-CANSP2013057246

PATIENT
  Sex: Female

DRUGS (1)
  1. PROLIA [Suspect]
     Indication: OSTEOPOROSIS POSTMENOPAUSAL
     Dosage: UNK
     Route: 065
     Dates: start: 20130116

REACTIONS (9)
  - Coronary artery occlusion [Unknown]
  - Blood cholesterol increased [Unknown]
  - Chest pain [Unknown]
  - Dry skin [Unknown]
  - Muscle spasms [Unknown]
  - Pruritus [Unknown]
  - Musculoskeletal pain [Unknown]
  - Feeling abnormal [Unknown]
  - Injury [Unknown]
